FAERS Safety Report 14093321 (Version 1)
Quarter: 2017Q4

REPORT INFORMATION
  Report Type: Spontaneous
  Country: US (occurrence: US)
  Receive Date: 20171016
  Receipt Date: 20171016
  Transmission Date: 20180321
  Serious: Yes (Disabling)
  Sender: FDA-Public Use
  Company Number: None

PATIENT
  Age: 35 Year
  Sex: Female
  Weight: 54 kg

DRUGS (2)
  1. WELLBUTRION [Concomitant]
  2. CIPRO [Suspect]
     Active Substance: CIPROFLOXACIN HYDROCHLORIDE
     Indication: URINARY TRACT INFECTION
     Dosage: ?          QUANTITY:1 CAPSULE(S);?
     Route: 048
     Dates: start: 20171010, end: 20171013

REACTIONS (3)
  - Anxiety [None]
  - Fatigue [None]
  - Emotional disorder [None]

NARRATIVE: CASE EVENT DATE: 20171013
